FAERS Safety Report 22982769 (Version 2)
Quarter: 2024Q1

REPORT INFORMATION
  Report Type: Spontaneous
  Country: US (occurrence: US)
  Receive Date: 20230926
  Receipt Date: 20240129
  Transmission Date: 20240409
  Serious: No
  Sender: FDA-Public Use
  Company Number: US-CIPLA LTD.-2023US02456

PATIENT

DRUGS (3)
  1. AMLODIPINE [Suspect]
     Active Substance: AMLODIPINE BESYLATE
     Indication: Blood pressure abnormal
     Dosage: 2.5 MILLIGRAM, QD (1 TABLET) ONCE A DAY EVERY MORNING (STRENGTH: 2.5 MG)
     Route: 048
  2. AMLODIPINE [Suspect]
     Active Substance: AMLODIPINE BESYLATE
     Dosage: 2.5 MILLIGRAM, QD (1 TABLET) ONCE A DAY EVERY MORNING (STRENGTH: 2.5 MG)
     Route: 048
     Dates: start: 2023
  3. PRAVASTATIN [Concomitant]
     Active Substance: PRAVASTATIN
     Indication: Blood cholesterol abnormal
     Dosage: 20 MILLIGRAM, QD IN THE EVENING
     Route: 065

REACTIONS (3)
  - Poor quality product administered [Unknown]
  - Product storage error [Unknown]
  - Product contamination [Unknown]

NARRATIVE: CASE EVENT DATE: 20230101
